FAERS Safety Report 10066838 (Version 1)
Quarter: 2014Q2

REPORT INFORMATION
  Report Type: Spontaneous
  Country: US (occurrence: US)
  Receive Date: 20140408
  Receipt Date: 20140408
  Transmission Date: 20141212
  Serious: No
  Sender: FDA-Public Use
  Company Number: US-TEVA-471982USA

PATIENT
  Sex: Male

DRUGS (2)
  1. COPAXONE 40 MG [Suspect]
     Indication: MULTIPLE SCLEROSIS
     Dates: start: 201403, end: 20140325
  2. COPAXONE 40 MG [Suspect]
     Dates: start: 20140326

REACTIONS (1)
  - Swelling [Unknown]
